FAERS Safety Report 9112676 (Version 6)
Quarter: 2014Q2

REPORT INFORMATION
  Report Type: Report from Study
  Country: FR (occurrence: FR)
  Receive Date: 20130211
  Receipt Date: 20140508
  Transmission Date: 20141212
  Serious: Yes (Hospitalization)
  Sender: FDA-Public Use
  Company Number: FR-ROCHE-1189869

PATIENT
  Age: 58 Year
  Sex: Male
  Weight: 95 kg

DRUGS (11)
  1. RHUPH20/RITUXIMAB [Suspect]
     Indication: B-CELL LYMPHOMA
     Dosage: LAST DOSE TAKEN: 1400 MG, MOST RECENT DOSE: 27/DEC/2012
     Route: 058
     Dates: start: 20121115
  2. CYCLOPHOSPHAMIDE [Suspect]
     Indication: B-CELL LYMPHOMA
     Route: 065
  3. DOXORUBICIN [Suspect]
     Indication: B-CELL LYMPHOMA
     Route: 065
  4. VINCRISTINE [Suspect]
     Indication: B-CELL LYMPHOMA
     Route: 065
  5. PREDNISONE [Suspect]
     Indication: B-CELL LYMPHOMA
     Route: 065
  6. PARACETAMOL [Concomitant]
     Indication: PAIN PROPHYLAXIS
     Route: 065
     Dates: start: 20121115
  7. POLARAMINE [Concomitant]
     Indication: ALLERGY PROPHYLAXIS
     Route: 065
     Dates: start: 20121115
  8. UROMITEXAN [Concomitant]
     Route: 065
     Dates: start: 20121115
  9. ZOPHREN [Concomitant]
     Indication: NAUSEA
     Route: 065
     Dates: start: 20121115
  10. GRANOCYTE [Concomitant]
     Indication: NEUTROPENIA
     Route: 065
     Dates: start: 20121217
  11. CLAMOXYL (FRANCE) [Concomitant]
     Indication: HYPERTHERMIA
     Route: 065
     Dates: start: 20130312, end: 20130317

REACTIONS (1)
  - Mouth ulceration [Recovered/Resolved]
